FAERS Safety Report 4353558-5 (Version None)
Quarter: 2004Q2

REPORT INFORMATION
  Report Type: 
  Country: None (occurrence: None)
  Receive Date: 20040505
  Receipt Date: 20040114
  Transmission Date: 20050107
  Serious: Yes (Other)
  Sender: FDA-Public Use
  Company Number: INV0229

PATIENT
  Age: 46 Year
  Sex: Male

DRUGS (8)
  1. ESKALITH [Suspect]
     Indication: BIPOLAR I DISORDER
     Dosage: 225MG PER DAY
     Route: 048
  2. LAMICTAL [Suspect]
     Indication: BIPOLAR DISORDER
     Dosage: 25MG PER DAY
     Route: 048
     Dates: start: 20040105
  3. ZYPREXA [Suspect]
     Indication: DRUG USE FOR UNKNOWN INDICATION
     Dates: start: 20040101, end: 20040309
  4. TOPAMAX [Suspect]
  5. VALIUM [Concomitant]
  6. SEIZURE MEDICATION [Concomitant]
     Route: 065
  7. GABAPENTIN [Concomitant]
  8. GABITRIL [Concomitant]

REACTIONS (11)
  - BLOOD CREATININE INCREASED [None]
  - CONFUSIONAL STATE [None]
  - DIZZINESS [None]
  - ERECTILE DYSFUNCTION [None]
  - EXTRAPYRAMIDAL DISORDER [None]
  - FATIGUE [None]
  - INSOMNIA [None]
  - RASH ERYTHEMATOUS [None]
  - RASH PRURITIC [None]
  - RENAL FAILURE [None]
  - SEXUAL DYSFUNCTION [None]
